FAERS Safety Report 15597681 (Version 1)
Quarter: 2018Q4

REPORT INFORMATION
  Report Type: Spontaneous
  Country: US (occurrence: US)
  Receive Date: 20181108
  Receipt Date: 20181108
  Transmission Date: 20190205
  Serious: No
  Sender: FDA-Public Use
  Company Number: US-TEVA-2018-US-973067

PATIENT
  Age: 55 Year
  Sex: Male

DRUGS (7)
  1. CLONAZEPAM SOLCO [Suspect]
     Active Substance: CLONAZEPAM
     Indication: ANXIETY
     Route: 065
  2. CLONAZEPAM ACCORD [Suspect]
     Active Substance: CLONAZEPAM
     Indication: ANXIETY
     Route: 065
  3. CLONAZEPAM WATSON [Suspect]
     Active Substance: CLONAZEPAM
     Indication: SLEEP DISORDER
     Dates: end: 20181019
  4. ZYPREXA [Suspect]
     Active Substance: OLANZAPINE
     Indication: DEPRESSION
     Route: 065
  5. CLONAZEPAM SOLCO [Suspect]
     Active Substance: CLONAZEPAM
     Indication: SLEEP DISORDER
  6. CLONAZEPAM WATSON [Suspect]
     Active Substance: CLONAZEPAM
     Indication: ANXIETY
     Route: 065
  7. CLONAZEPAM ACCORD [Suspect]
     Active Substance: CLONAZEPAM
     Indication: SLEEP DISORDER

REACTIONS (4)
  - Product substitution issue [Unknown]
  - Nausea [Unknown]
  - Asthenia [Unknown]
  - Dizziness [Unknown]
